FAERS Safety Report 18982595 (Version 1)
Quarter: 2021Q1

REPORT INFORMATION
  Report Type: Spontaneous
  Country: US (occurrence: US)
  Receive Date: 20210308
  Receipt Date: 20210308
  Transmission Date: 20210420
  Serious: Yes (Other)
  Sender: FDA-Public Use
  Company Number: US-PFIZER INC-2021238253

PATIENT
  Sex: Female

DRUGS (1)
  1. DILANTIN [Suspect]
     Active Substance: PHENYTOIN
     Indication: SEIZURE
     Dosage: UNK
     Route: 048

REACTIONS (11)
  - Toxicity to various agents [Unknown]
  - Depression [Unknown]
  - Insomnia [Unknown]
  - Hypoaesthesia [Unknown]
  - Bipolar disorder [Unknown]
  - Anxiety [Unknown]
  - Dizziness [Unknown]
  - Gait disturbance [Unknown]
  - Dementia [Unknown]
  - Headache [Unknown]
  - Ataxia [Unknown]
